FAERS Safety Report 5109679-2 (Version None)
Quarter: 2006Q3

REPORT INFORMATION
  Report Type: 
  Country: None (occurrence: None)
  Receive Date: 20060918
  Receipt Date: 20060831
  Transmission Date: 20061208
  Serious: Yes (Other)
  Sender: FDA-Public Use
  Company Number: 8016994

PATIENT
  Age: 57 Year
  Sex: Female

DRUGS (7)
  1. KEPPRA [Suspect]
     Indication: HYPOXIA
     Dosage: 500 MG 2/D PO
     Route: 048
  2. KEPPRA [Suspect]
     Indication: MYOCLONUS
     Dosage: 500 MG 2/D PO
     Route: 048
  3. KEPPRA [Suspect]
     Indication: HYPOXIA
     Dosage: 250 MG /D PO
     Route: 048
  4. KEPPRA [Suspect]
     Indication: MYOCLONUS
     Dosage: 250 MG /D PO
     Route: 048
  5. RIVOTRIL [Concomitant]
  6. NOOTROPYL [Concomitant]
  7. LEVOTONINE [Concomitant]

REACTIONS (10)
  - ABDOMINAL PAIN [None]
  - ACNE [None]
  - AMNESIA [None]
  - ASTHENIA [None]
  - BULIMIA NERVOSA [None]
  - HOMICIDAL IDEATION [None]
  - PSYCHOMOTOR HYPERACTIVITY [None]
  - RASH PRURITIC [None]
  - SUICIDAL IDEATION [None]
  - WEIGHT INCREASED [None]
